FAERS Safety Report 8425204 (Version 2)
Quarter: 2013Q2

REPORT INFORMATION
  Report Type: Spontaneous
  Country: US (occurrence: None)
  Receive Date: 20111227
  Receipt Date: 20120426
  Transmission Date: 20140414
  Serious: Yes (Other)
  Sender: FDA-Public Use
  Company Number: PHEH2011US07901

PATIENT
  Age: 55 Year
  Sex: Male

DRUGS (6)
  1. GILENYA [Suspect]
     Indication: MULTIPLE SCLEROSIS
     Dosage: 0.5 MG, QD, ORAL
     Route: 048
     Dates: start: 20110819
  2. FAMPRIDINE (FAMPRIDINE) [Concomitant]
  3. CELEBREX (CELECOXIB) CAPSULE [Concomitant]
  4. FLUOXETINE (FLUOXETINE) CAPSULE [Concomitant]
  5. OMEPRAZOLE (OMEPRAZOLE) TABLET [Concomitant]
  6. ZONISAMIDE (ZONISAMIDE) CAPSULE [Concomitant]

REACTIONS (5)
  - COLD SWEAT [None]
  - HEAD DISCOMFORT [None]
  - HEADACHE [None]
  - Balance disorder [None]
  - Dizziness [None]
